FAERS Safety Report 4905082-6 (Version None)
Quarter: 2006Q1

REPORT INFORMATION
  Report Type: 
  Country: None (occurrence: None)
  Receive Date: 20060207
  Receipt Date: 20060207
  Transmission Date: 20060701
  Serious: No
  Sender: FDA-Public Use
  Company Number: None

PATIENT
  Age: 32 Year
  Sex: Male
  Weight: 85 kg

DRUGS (1)
  1. CIPROXIN     500MG      CIPRO [Suspect]
     Indication: ARTHRITIS BACTERIAL
     Dosage: 500 MG   TWICE DAILY  PO
     Route: 048
     Dates: start: 19980415, end: 19980823

REACTIONS (4)
  - GASTROINTESTINAL DISORDER [None]
  - INSOMNIA [None]
  - TENDON RUPTURE [None]
  - TENDONITIS [None]
